FAERS Safety Report 16983285 (Version 1)
Quarter: 2019Q4

REPORT INFORMATION
  Report Type: Spontaneous
  Country: FR (occurrence: FR)
  Receive Date: 20191101
  Receipt Date: 20191101
  Transmission Date: 20200122
  Serious: Yes (Hospitalization)
  Sender: FDA-Public Use
  Company Number: FR-TEVA-2019-FR-1132617

PATIENT
  Age: 70 Year
  Sex: Female

DRUGS (1)
  1. ACTONEL (RISEDRONIC ACID) [Suspect]
     Active Substance: RISEDRONIC ACID
     Indication: OSTEOPOROSIS
     Route: 048
     Dates: start: 20190615, end: 20190630

REACTIONS (3)
  - Gastritis [Recovered/Resolved]
  - Oesophagitis [Recovered/Resolved]
  - Ocular hyperaemia [Recovered/Resolved]

NARRATIVE: CASE EVENT DATE: 20190616
